FAERS Safety Report 5265335-1 (Version None)
Quarter: 2007Q1

REPORT INFORMATION
  Report Type: 
  Country: None (occurrence: None)
  Receive Date: 20061213
  Receipt Date: 20040116
  Transmission Date: 20070707
  Serious: Yes (Other)
  Sender: FDA-Public Use
  Company Number: 2004UW01039

PATIENT
  Age: 59 Year
  Sex: Male

DRUGS (1)
  1. IRESSA [Suspect]
     Dates: start: 20031010

REACTIONS (2)
  - EOSINOPHIL COUNT INCREASED [None]
  - RASH [None]
